FAERS Safety Report 18489677 (Version 1)
Quarter: 2020Q4

REPORT INFORMATION
  Report Type: Spontaneous
  Country: AU (occurrence: AU)
  Receive Date: 20201111
  Receipt Date: 20201111
  Transmission Date: 20210114
  Serious: Yes (Other)
  Sender: FDA-Public Use
  Company Number: AU-MACLEODS PHARMACEUTICALS US LTD-MAC2020029052

PATIENT

DRUGS (3)
  1. QUETIAPINE TABLET [Suspect]
     Active Substance: QUETIAPINE
     Indication: PRODUCT USED FOR UNKNOWN INDICATION
     Dosage: UNK
     Route: 045
  2. FLUTICASONE. [Concomitant]
     Active Substance: FLUTICASONE
     Indication: ASTHMA
     Dosage: 250 MICROGRAM, BID ACCUHALER
     Route: 065
  3. SALBUTAMOL [Concomitant]
     Active Substance: ALBUTEROL
     Indication: ASTHMA
     Dosage: UNK UNK, PRN (MDI PRN)
     Route: 065

REACTIONS (4)
  - Neutropenia [Recovered/Resolved]
  - Intentional product misuse [Recovered/Resolved]
  - Wrong technique in product usage process [Recovered/Resolved]
  - Toxicity to various agents [Recovered/Resolved]
